FAERS Safety Report 25914460 (Version 1)
Quarter: 2025Q4

REPORT INFORMATION
  Report Type: Report from Study
  Country: EU (occurrence: EU)
  Receive Date: 20251013
  Receipt Date: 20251013
  Transmission Date: 20260118
  Serious: Yes (Hospitalization, Other)
  Sender: ABBVIE
  Company Number: EU-ABBVIE-6495607

PATIENT
  Age: 76 Year
  Sex: Female

DRUGS (2)
  1. RINVOQ [Suspect]
     Active Substance: UPADACITINIB
     Indication: Product used for unknown indication
     Route: 048
     Dates: start: 202102, end: 202212
  2. METHOTREXATE SODIUM [Concomitant]
     Active Substance: METHOTREXATE SODIUM
     Indication: Product used for unknown indication
     Dosage: 15,0,12,5/LEF 20,6,3

REACTIONS (5)
  - Coronary artery disease [Unknown]
  - Coronary artery perforation [Unknown]
  - Nodal osteoarthritis [Unknown]
  - Pericardial effusion [Unknown]
  - Synovitis [Unknown]

NARRATIVE: CASE EVENT DATE: 20250407
